FAERS Safety Report 6638457-8 (Version None)
Quarter: 2010Q1

REPORT INFORMATION
  Report Type: 
  Country: None (occurrence: None)
  Receive Date: 20100316
  Receipt Date: 20100316
  Transmission Date: 20100710
  Serious: No
  Sender: FDA-Public Use
  Company Number: None

PATIENT
  Sex: Female
  Weight: 72.6 kg

DRUGS (1)
  1. VIDEX [Suspect]
     Indication: HIV INFECTION
     Dosage: VARRIED WITH WEIGHT BID PO
     Route: 048
     Dates: start: 19920801, end: 19970801

REACTIONS (2)
  - HEPATOSPLENOMEGALY [None]
  - VARICES OESOPHAGEAL [None]
